FAERS Safety Report 7914196-8 (Version None)
Quarter: 2011Q4

REPORT INFORMATION
  Report Type: 
  Country: None (occurrence: None)
  Receive Date: 20111115
  Receipt Date: 20111115
  Transmission Date: 20120403
  Serious: Yes (Other)
  Sender: FDA-Public Use
  Company Number: None

PATIENT
  Age: 40 Year
  Sex: Female
  Weight: 95.707 kg

DRUGS (1)
  1. ETODOLAC [Suspect]

REACTIONS (1)
  - GASTRIC MUCOSAL LESION [None]
